FAERS Safety Report 6882139-4 (Version None)
Quarter: 2010Q3

REPORT INFORMATION
  Report Type: 
  Country: None (occurrence: None)
  Receive Date: 20100729
  Receipt Date: 20100720
  Transmission Date: 20110219
  Serious: Yes (Hospitalization)
  Sender: FDA-Public Use
  Company Number: AU-ASTRAZENECA-2010SE30068

PATIENT
  Age: 47 Year
  Sex: Female

DRUGS (4)
  1. NEXIUM [Suspect]
     Route: 048
  2. AMOXICILLIN TRIHYDRATE [Suspect]
  3. CLARITHROMYCIN [Suspect]
  4. AMOXICILLIN SODIUM [Suspect]

REACTIONS (1)
  - MYOSITIS [None]
